FAERS Safety Report 17224562 (Version 1)
Quarter: 2020Q1

REPORT INFORMATION
  Report Type: Spontaneous
  Country: AT (occurrence: AT)
  Receive Date: 20200102
  Receipt Date: 20200102
  Transmission Date: 20200409
  Serious: Yes (Hospitalization, Other)
  Sender: FDA-Public Use
  Company Number: AT-AMGEN-AUTSP2019215663

PATIENT
  Age: 63 Year
  Sex: Female
  Weight: 53 kg

DRUGS (1)
  1. REPATHA [Suspect]
     Active Substance: EVOLOCUMAB
     Indication: HYPERLIPIDAEMIA
     Dosage: 140 MILLIGRAM, Q2WK
     Route: 058
     Dates: start: 20190329, end: 201908

REACTIONS (11)
  - Dizziness [Recovered/Resolved]
  - Weight decreased [Recovered/Resolved]
  - Fatigue [Recovered/Resolved]
  - Muscle spasms [Recovered/Resolved]
  - Anxiety [Recovered/Resolved]
  - Tremor [Recovered/Resolved]
  - Asthenia [Recovered/Resolved]
  - Muscular weakness [Recovered/Resolved]
  - Nausea [Recovered/Resolved]
  - Disturbance in attention [Recovered/Resolved]
  - Circulatory collapse [Recovered/Resolved]

NARRATIVE: CASE EVENT DATE: 201905
